FAERS Safety Report 22238500 (Version 1)
Quarter: 2023Q2

REPORT INFORMATION
  Report Type: Report from Study
  Country: GB (occurrence: GB)
  Receive Date: 20230421
  Receipt Date: 20230421
  Transmission Date: 20230722
  Serious: Yes (Other)
  Sender: FDA-Public Use
  Company Number: GB-ROCHE-2591401

PATIENT
  Age: 40 Year
  Sex: Female

DRUGS (33)
  1. PACLITAXEL [Suspect]
     Active Substance: PACLITAXEL
     Indication: Breast cancer metastatic
     Dosage: UNIT DOSE : 156 MG, THERAPY DURATION : 148 DAYS, PACLITAXEL LIPOSOME
     Route: 042
     Dates: start: 20180216, end: 20180713
  2. TRASTUZUMAB [Suspect]
     Active Substance: TRASTUZUMAB
     Indication: Breast cancer metastatic
     Dosage: 600 MG, EVERY 3 WEEKS, THERAPY DURATION : 543 DAYS
     Route: 058
     Dates: start: 20180216, end: 20190812
  3. ADO-TRASTUZUMAB EMTANSINE [Suspect]
     Active Substance: ADO-TRASTUZUMAB EMTANSINE
     Indication: Breast cancer metastatic
     Dosage: UNIT DOSE : 400 MG/KG, FREQUENCY ; 1 , FREQUENCY TIME : 3 WEEKS, THERAPY END DATE : NOT ASKED
     Route: 042
     Dates: start: 20190906
  4. CALCIUM CARBONATE\CHOLECALCIFEROL [Concomitant]
     Active Substance: CALCIUM CARBONATE\CHOLECALCIFEROL
     Indication: Product used for unknown indication
     Route: 048
     Dates: start: 20180224
  5. BENZYDAMINE [Concomitant]
     Active Substance: BENZYDAMINE
     Indication: Product used for unknown indication
     Dosage: UNIT DOSE : 15 ML
     Route: 065
     Dates: start: 20191018
  6. BISACODYL [Concomitant]
     Active Substance: BISACODYL
     Indication: Product used for unknown indication
     Dosage: 5 MILLIGRAM DAILY;  UNIT DOSE : 5 MG, FREQUENCY ; 1 , FREQUENCY TIME : 1 DAYS,
     Route: 048
     Dates: start: 20180320
  7. CHLORHEXIDINE [Concomitant]
     Active Substance: CHLORHEXIDINE
     Indication: Product used for unknown indication
     Route: 048
     Dates: start: 20180503
  8. CLARITHROMYCIN [Concomitant]
     Active Substance: CLARITHROMYCIN
     Indication: Product used for unknown indication
     Dosage: 1000 MILLIGRAM DAILY;  UNIT DOSE : 500 MG, FREQUENCY ; 2 , FREQUENCY TIME : 1 DAYS, THERAPY DURATION
     Route: 048
     Dates: start: 20200817, end: 20200824
  9. DEXAMETHASONE [Concomitant]
     Active Substance: DEXAMETHASONE
     Indication: Product used for unknown indication
     Dosage: 2 MILLIGRAM DAILY;  UNIT DOSE : 2 MG, FREQUENCY ; 1 , FREQUENCY TIME : 1 DAYS, THERAPY DURATION : 7
     Route: 048
     Dates: start: 20180131, end: 20180206
  10. DEXAMETHASONE [Concomitant]
     Active Substance: DEXAMETHASONE
     Dosage: 8 MILLIGRAM DAILY;  UNIT DOSE : 8 MG, FREQUENCY ; 1 , FREQUENCY TIME : 1 DAYS, THERAPY DURATION : 21
     Route: 048
     Dates: start: 20180110, end: 20180130
  11. DEXAMETHASONE [Concomitant]
     Active Substance: DEXAMETHASONE
     Dosage: 2 MILLIGRAM DAILY;  UNIT DOSE : 2 MG, FREQUENCY ; 1 , FREQUENCY TIME : 1 DAYS,
     Route: 048
     Dates: start: 20180315, end: 2018
  12. DIAZEPAM [Concomitant]
     Active Substance: DIAZEPAM
     Indication: Product used for unknown indication
     Dosage: 10 MILLIGRAM DAILY;  UNIT DOSE :5 MG, FREQUENCY ; 2 , FREQUENCY TIME : 1 DAYS,
     Route: 048
     Dates: start: 20200206
  13. DIAZEPAM [Concomitant]
     Active Substance: DIAZEPAM
     Dosage: UNIT DOSE : 5 MG, THERAPY DURATION : 56 DAYS
     Route: 065
     Dates: start: 20191212, end: 20200205
  14. DOCUSATE [Concomitant]
     Active Substance: DOCUSATE
     Indication: Prophylaxis
     Dosage: 2 CAPSULE, FREQUENCY : 2 , FREQUENCY TIME : 1 DAYS
     Route: 048
     Dates: start: 20191125
  15. DOCUSATE [Concomitant]
     Active Substance: DOCUSATE
     Indication: Prophylaxis
     Dosage: 2 CAPSULE, , FREQUENCY : 2 , FREQUENCY TIME : 1 DAYS
     Route: 048
     Dates: start: 20191125
  16. DOCUSATE [Concomitant]
     Active Substance: DOCUSATE
     Dosage: 200 MILLIGRAM DAILY;  UNIT DOSE : 100 MG, FREQUENCY ; 2 , FREQUENCY TIME : 1 DAYS,
     Route: 048
     Dates: start: 20180222
  17. FEXOFENADINE [Concomitant]
     Active Substance: FEXOFENADINE HYDROCHLORIDE
     Indication: Product used for unknown indication
     Dosage: UNIT DOSE : 180 MG
     Route: 048
     Dates: start: 20200817
  18. FUROSEMIDE [Concomitant]
     Active Substance: FUROSEMIDE
     Indication: Product used for unknown indication
     Dosage: 80 MILLIGRAM DAILY;  UNIT DOSE : 40 MG, FREQUENCY ; 2 , FREQUENCY TIME : 1 DAYS,
     Route: 048
     Dates: start: 20200409
  19. FUROSEMIDE [Concomitant]
     Active Substance: FUROSEMIDE
     Dosage: 80 MILLIGRAM DAILY;  UNIT DOSE : 40 MG, FREQUENCY ; 2 , FREQUENCY TIME : 1 DAYS,
     Route: 048
     Dates: start: 20200409
  20. IBUPROFEN [Concomitant]
     Active Substance: IBUPROFEN
     Indication: Product used for unknown indication
     Route: 048
     Dates: start: 201912
  21. LIDOCAINE [Concomitant]
     Active Substance: LIDOCAINE
     Indication: Product used for unknown indication
     Dosage: FREQUENCY : 11 , FREQUENCY TIME : 1 DAYS
     Route: 061
     Dates: start: 20180222, end: 2018
  22. LORAZEPAM [Concomitant]
     Active Substance: LORAZEPAM
     Indication: Product used for unknown indication
     Dosage: PRN, UNIT DOSE : 1 MG
     Route: 048
     Dates: start: 20200604
  23. METOCLOPRAMIDE [Concomitant]
     Active Substance: METOCLOPRAMIDE
     Indication: Product used for unknown indication
     Dosage: UNIT DOSE : 10 MG, THERAPY DURATION : 148 DAYS
     Route: 048
     Dates: start: 20180216, end: 20180713
  24. METOCLOPRAMIDE [Concomitant]
     Active Substance: METOCLOPRAMIDE
     Dosage: 10 MILLIGRAM DAILY;  UNIT DOSE : 10 MG, FREQUENCY ; 1 , FREQUENCY TIME : 1 DAYS,
     Route: 048
     Dates: start: 20180714
  25. MIRTAZAPINE [Concomitant]
     Active Substance: MIRTAZAPINE
     Indication: Product used for unknown indication
     Dosage: 15 MILLIGRAM DAILY;  UNIT DOSE : 15 MG, FREQUENCY ; 1 , FREQUENCY TIME : 1 DAYS,
     Route: 048
     Dates: start: 20200205
  26. MORPHINE [Concomitant]
     Active Substance: MORPHINE
     Indication: Product used for unknown indication
     Route: 048
     Dates: start: 20180205
  27. OMEPRAZOLE [Concomitant]
     Active Substance: OMEPRAZOLE
     Indication: Product used for unknown indication
     Dosage: 40 MILLIGRAM DAILY;  UNIT DOSE : 40 MG, FREQUENCY ; 1 , FREQUENCY TIME : 1 DAYS,
     Route: 048
     Dates: start: 20180226
  28. MORPHINE SULFATE [Concomitant]
     Active Substance: MORPHINE SULFATE
     Indication: Product used for unknown indication
     Dosage: UNIT DOSE : 10 MG
     Route: 048
     Dates: start: 201802
  29. ACETAMINOPHEN [Concomitant]
     Active Substance: ACETAMINOPHEN
     Indication: Product used for unknown indication
     Dosage: UNIT DOSE : 1 GRAM
     Route: 048
  30. ZOLEDRONIC ACID [Concomitant]
     Active Substance: ZOLEDRONIC ACID
     Indication: Product used for unknown indication
     Dosage: DURATION : 143 DAYS
     Route: 042
     Dates: start: 20180124, end: 20180615
  31. ZOLEDRONIC ACID [Concomitant]
     Active Substance: ZOLEDRONIC ACID
     Dosage: UNIT DOSE : 3 MG
     Route: 042
     Dates: start: 20181126
  32. FLUCLOXACILLIN [Concomitant]
     Active Substance: FLUCLOXACILLIN
     Indication: Product used for unknown indication
  33. LORATADINE [Concomitant]
     Active Substance: LORATADINE
     Indication: Product used for unknown indication

REACTIONS (2)
  - Cellulitis [Unknown]
  - Skin ulcer [Recovered/Resolved]

NARRATIVE: CASE EVENT DATE: 20200311
